FAERS Safety Report 8885966 (Version 1)
Quarter: 2012Q4

REPORT INFORMATION
  Report Type: 
  Country: US (occurrence: US)
  Receive Date: 20121105
  Receipt Date: 20121105
  Transmission Date: 20130627
  Serious: No
  Sender: FDA-Public Use
  Company Number: US-PFIZER INC-2012274405

PATIENT
  Age: 55 Year
  Sex: Female
  Weight: 54.42 kg

DRUGS (4)
  1. NICOTROL NASAL SPRAY [Suspect]
     Indication: SMOKING CESSATION THERAPY
     Dosage: UNK
     Dates: start: 201206, end: 201206
  2. ATENOLOL [Concomitant]
     Indication: BLOOD PRESSURE ABNORMAL
     Dosage: 25 mg, daily
     Dates: start: 2012
  3. ATENOLOL [Concomitant]
     Indication: HEART DISORDER
  4. ZETIA [Concomitant]
     Indication: HIGH CHOLESTEROL
     Dosage: 10 mg, daily

REACTIONS (4)
  - Eye irritation [Unknown]
  - Lacrimation increased [Unknown]
  - Oropharyngeal pain [Unknown]
  - Rhinorrhoea [Unknown]
